FAERS Safety Report 24084681 (Version 4)
Quarter: 2024Q3

REPORT INFORMATION
  Report Type: Spontaneous
  Country: US (occurrence: US)
  Receive Date: 20240712
  Receipt Date: 20240919
  Transmission Date: 20241017
  Serious: No
  Sender: BAYER
  Company Number: US-BAYER-2024A099320

PATIENT
  Age: 53 Year
  Sex: Female

DRUGS (3)
  1. CLIMARA PRO [Suspect]
     Active Substance: ESTRADIOL\LEVONORGESTREL
     Dosage: UNK
     Route: 062
     Dates: start: 20240612, end: 20240715
  2. CHOLECALCIFEROL [Concomitant]
     Active Substance: CHOLECALCIFEROL
     Route: 048
  3. AMBIEN [Concomitant]
     Active Substance: ZOLPIDEM TARTRATE
     Dosage: 5 MG, QD
     Route: 048
     Dates: start: 20240614

REACTIONS (9)
  - Application site rash [None]
  - Abdominal pain upper [None]
  - Asthenia [None]
  - Discomfort [None]
  - Depressed mood [None]
  - Mood altered [None]
  - Device adhesion issue [None]
  - Night sweats [None]
  - Sleep disorder [None]

NARRATIVE: CASE EVENT DATE: 20240101
